FAERS Safety Report 10720794 (Version 1)
Quarter: 2015Q1

REPORT INFORMATION
  Report Type: Spontaneous
  Country: US (occurrence: US)
  Receive Date: 20150119
  Receipt Date: 20150119
  Transmission Date: 20150721
  Serious: No
  Sender: FDA-Public Use
  Company Number: US-UNITED THERAPEUTICS-UNT-2014-006331

PATIENT
  Age: 48 Year
  Sex: Female

DRUGS (1)
  1. REMODULIN [Suspect]
     Active Substance: TREPROSTINIL
     Indication: COR PULMONALE CHRONIC
     Dosage: 0.072 ?G/KG/MIN, CONTINUING
     Route: 058
     Dates: start: 20131220

REACTIONS (5)
  - Infusion site induration [Unknown]
  - Injection site discharge [Unknown]
  - Infusion site warmth [Unknown]
  - Infusion site erythema [Unknown]
  - Infusion site pain [Unknown]

NARRATIVE: CASE EVENT DATE: 20140815
